FAERS Safety Report 7416305-6 (Version None)
Quarter: 2011Q2

REPORT INFORMATION
  Report Type: 
  Country: None (occurrence: None)
  Receive Date: 20110414
  Receipt Date: 20110404
  Transmission Date: 20111010
  Serious: Yes (Other)
  Sender: FDA-Public Use
  Company Number: US-ELI_LILLY_AND_COMPANY-US201104001472

PATIENT
  Age: 49 Year
  Sex: Male

DRUGS (6)
  1. GEMCITABINE HYDROCHLORIDE [Suspect]
     Dosage: UNK
  2. CAPECITABINE [Concomitant]
     Indication: METASTATIC RENAL CELL CARCINOMA
     Dosage: 1750 MG/M2, OTHER
  3. PROLEUKIN [Concomitant]
     Indication: METASTATIC RENAL CELL CARCINOMA
     Dosage: UNK, UNKNOWN
     Route: 065
  4. ERLOTINIB HYDROCHLORIDE [Concomitant]
     Indication: METASTATIC RENAL CELL CARCINOMA
     Dosage: UNK, UNKNOWN
     Route: 065
  5. GEMCITABINE HYDROCHLORIDE [Suspect]
     Indication: METASTATIC RENAL CELL CARCINOMA
     Dosage: 1200 MG/M2, OVER TWO HOURS, BIWEEKLY
     Route: 042
  6. BEVACIZUMAB [Concomitant]
     Indication: METASTATIC RENAL CELL CARCINOMA
     Dosage: 10 MG/KG, 2/W
     Route: 042

REACTIONS (3)
  - NEOPLASM MALIGNANT [None]
  - NEOPLASM RECURRENCE [None]
  - PALMAR-PLANTAR ERYTHRODYSAESTHESIA SYNDROME [None]
